FAERS Safety Report 8297954-2 (Version None)
Quarter: 2012Q2

REPORT INFORMATION
  Report Type: 
  Country: None (occurrence: None)
  Receive Date: 20120419
  Receipt Date: 20120416
  Transmission Date: 20120825
  Serious: Yes (Life-Threatening, Hospitalization)
  Sender: FDA-Public Use
  Company Number: AU-B.I. PHARMACEUTICALS,INC./RIDGEFIELD-2011-AU-01278AU

PATIENT
  Sex: Female
  Weight: 70 kg

DRUGS (5)
  1. PRADAXA [Suspect]
     Indication: ATRIAL FIBRILLATION
     Dosage: 220 MG
     Dates: start: 20110716, end: 20110730
  2. IRBESARTAN + HYDROCHLOROTHIAZIDE [Concomitant]
  3. PAROXETINE [Concomitant]
  4. AZATHIOPRINE [Concomitant]
  5. RABEPRAZOLE SODIUM [Concomitant]

REACTIONS (5)
  - HEMIANOPIA HOMONYMOUS [None]
  - HEMIPLEGIA [None]
  - BLOOD PRESSURE INCREASED [None]
  - ISCHAEMIC STROKE [None]
  - ANAESTHESIA [None]
